FAERS Safety Report 14963066 (Version 2)
Quarter: 2018Q2

REPORT INFORMATION
  Report Type: Report from Study
  Country: US (occurrence: US)
  Receive Date: 20180601
  Receipt Date: 20180607
  Transmission Date: 20180711
  Serious: No
  Sender: FDA-Public Use
  Company Number: US-PFIZER INC-2018220420

PATIENT
  Age: 18 Year
  Sex: Female

DRUGS (5)
  1. KETAMINE HCL [Suspect]
     Active Substance: KETAMINE HYDROCHLORIDE
     Indication: PAIN
     Dosage: UNK (0.1+0.1 MG/KG BOLUS) (MG/KG/H)
  2. KETAMINE HCL [Suspect]
     Active Substance: KETAMINE HYDROCHLORIDE
     Indication: ARTHRALGIA
  3. KETAMINE HCL [Suspect]
     Active Substance: KETAMINE HYDROCHLORIDE
     Indication: BACK PAIN
  4. KETAMINE HCL [Suspect]
     Active Substance: KETAMINE HYDROCHLORIDE
     Indication: SICKLE CELL DISEASE
     Dosage: UNK, MAXIMUM KETAMINE INFUSION RATE (3.33 UG/KG/MIN)
  5. KETAMINE HCL [Suspect]
     Active Substance: KETAMINE HYDROCHLORIDE
     Indication: MUSCULOSKELETAL PAIN
     Dosage: UNK (0.2) (MG/KG/H)

REACTIONS (1)
  - Dysphoria [Unknown]
